FAERS Safety Report 18821361 (Version 1)
Quarter: 2021Q1

REPORT INFORMATION
  Report Type: Spontaneous
  Country: DE (occurrence: DE)
  Receive Date: 20210201
  Receipt Date: 20210201
  Transmission Date: 20210419
  Serious: Yes (Life-Threatening, Other)
  Sender: FDA-Public Use
  Company Number: DE-PFIZER INC-2021073026

PATIENT
  Age: 29 Year
  Sex: Female
  Weight: 53 kg

DRUGS (12)
  1. VENLAFAXINE HCL [Suspect]
     Active Substance: VENLAFAXINE HYDROCHLORIDE
     Indication: DEPRESSION
     Dosage: 225 MG
     Route: 048
     Dates: start: 20190810, end: 20201231
  2. VENLAFAXINE HCL [Suspect]
     Active Substance: VENLAFAXINE HYDROCHLORIDE
     Dosage: 37.5 MG
     Route: 048
     Dates: start: 20190810
  3. FERRO?SANOL DUODENAL [Suspect]
     Active Substance: FERROUS GLYCINE SULFATE
     Indication: FATIGUE
     Dosage: 100 MG, 1X/DAY (IN THE MORNING, IF NECESSARY MORE)
     Route: 048
     Dates: start: 20201004, end: 20201112
  4. TAVOR (LORAZEPAM) [Suspect]
     Active Substance: LORAZEPAM
     Indication: RESTLESSNESS
  5. VALDOXAN [Suspect]
     Active Substance: AGOMELATINE
     Indication: SLEEP DISORDER
  6. TAVOR (LORAZEPAM) [Suspect]
     Active Substance: LORAZEPAM
     Indication: ANXIETY
     Dosage: UNK
     Route: 048
     Dates: start: 201907, end: 201909
  7. VENLAFAXINE HCL [Suspect]
     Active Substance: VENLAFAXINE HYDROCHLORIDE
     Indication: BURNOUT SYNDROME
     Dosage: UNK
     Route: 048
     Dates: start: 2019, end: 20201130
  8. VALDOXAN [Suspect]
     Active Substance: AGOMELATINE
     Indication: RESTLESSNESS
     Route: 048
     Dates: start: 201911, end: 20201113
  9. FERRO?SANOL DUODENAL [Suspect]
     Active Substance: FERROUS GLYCINE SULFATE
     Indication: IRON DEFICIENCY
  10. TAVOR (LORAZEPAM) [Suspect]
     Active Substance: LORAZEPAM
     Indication: PANIC ATTACK
  11. VALDOXAN [Suspect]
     Active Substance: AGOMELATINE
     Indication: INITIAL INSOMNIA
  12. FERRO?SANOL DUODENAL [Suspect]
     Active Substance: FERROUS GLYCINE SULFATE
     Indication: ABDOMINAL DISCOMFORT

REACTIONS (11)
  - Impaired quality of life [Not Recovered/Not Resolved]
  - Respiratory distress [Recovering/Resolving]
  - Serotonin syndrome [Unknown]
  - Feeling abnormal [Unknown]
  - Depression [Unknown]
  - Restlessness [Not Recovered/Not Resolved]
  - Dizziness [Not Recovered/Not Resolved]
  - Pruritus [Unknown]
  - Headache [Not Recovered/Not Resolved]
  - Palpitations [Recovering/Resolving]
  - Panic attack [Not Recovered/Not Resolved]

NARRATIVE: CASE EVENT DATE: 2019
